FAERS Safety Report 5103513-2 (Version None)
Quarter: 2006Q3

REPORT INFORMATION
  Report Type: 
  Country: None (occurrence: None)
  Receive Date: 20060913
  Receipt Date: 20060829
  Transmission Date: 20061208
  Serious: Yes (Life-Threatening)
  Sender: FDA-Public Use
  Company Number: NO-JNJFOC-20060900473

PATIENT
  Sex: Male
  Weight: 139 kg

DRUGS (2)
  1. CONCERTA [Suspect]
     Indication: ATTENTION DEFICIT/HYPERACTIVITY DISORDER
     Dosage: 36MG IN THE MORNING, 18MG IN THE EVENING
     Route: 048
  2. SEROQUEL [Concomitant]
     Indication: MENTAL DISORDER
     Dosage: 300MG IN THE MORNING, 600MG IN THE EVENING
     Route: 048

REACTIONS (8)
  - CARDIAC FAILURE [None]
  - CONGESTIVE CARDIOMYOPATHY [None]
  - CYANOSIS [None]
  - DYSPNOEA [None]
  - HAEMATEMESIS [None]
  - HEPATIC FAILURE [None]
  - RENAL FAILURE ACUTE [None]
  - TACHYCARDIA [None]
